FAERS Safety Report 26117181 (Version 2)
Quarter: 2025Q4

REPORT INFORMATION
  Report Type: Spontaneous
  Country: SG (occurrence: SG)
  Receive Date: 20251203
  Receipt Date: 20251205
  Transmission Date: 20260117
  Serious: Yes (Life-Threatening, Hospitalization, Other)
  Sender: PFIZER
  Company Number: SG-PFIZER INC-PV202500139049

PATIENT
  Age: 54 Year
  Sex: Female

DRUGS (1)
  1. HYDROCORTISONE SODIUM SUCCINATE [Suspect]
     Active Substance: HYDROCORTISONE SODIUM SUCCINATE
     Indication: Pituitary-dependent Cushing^s syndrome
     Dosage: UNK (TAPERING DOSE)

REACTIONS (3)
  - Steroid withdrawal syndrome [Recovering/Resolving]
  - Hypercalcaemia [Recovering/Resolving]
  - Off label use [Unknown]
